FAERS Safety Report 17892425 (Version 2)
Quarter: 2020Q2

REPORT INFORMATION
  Report Type: Report from Study
  Country: CO (occurrence: CO)
  Receive Date: 20200612
  Receipt Date: 20200628
  Transmission Date: 20200714
  Serious: Yes (Life-Threatening, Other)
  Sender: FDA-Public Use
  Company Number: NVSC2020CO164273

PATIENT
  Age: 22 Year
  Sex: Female

DRUGS (4)
  1. REVOLADE [Suspect]
     Active Substance: ELTROMBOPAG
     Dosage: 75 MG, QD (TABLET OF 50 MG AND TABLET OF 25 MG)
     Route: 048
     Dates: start: 2019
  2. RANITIDINE. [Concomitant]
     Active Substance: RANITIDINE
     Indication: GASTRITIS
     Dosage: UNK (AS NEEDED)
     Route: 048
  3. REVOLADE [Suspect]
     Active Substance: ELTROMBOPAG
     Indication: THROMBOCYTOPENIA
     Dosage: 50 MG, QD
     Route: 048
     Dates: start: 2019
  4. GENOPRAZOL [Concomitant]
     Indication: GASTRITIS
     Dosage: UNK (AS NEEDED)
     Route: 048

REACTIONS (11)
  - Haemoglobin abnormal [Unknown]
  - Platelet count decreased [Unknown]
  - Contusion [Unknown]
  - Asphyxia [Unknown]
  - Immune system disorder [Recovered/Resolved]
  - Haemorrhage [Unknown]
  - Haematoma [Recovered/Resolved]
  - Gingival bleeding [Not Recovered/Not Resolved]
  - Petechiae [Recovered/Resolved]
  - Dysmenorrhoea [Unknown]
  - Cardiac disorder [Unknown]

NARRATIVE: CASE EVENT DATE: 20200522
